FAERS Safety Report 7892224-6 (Version None)
Quarter: 2011Q4

REPORT INFORMATION
  Report Type: 
  Country: None (occurrence: None)
  Receive Date: 20111104
  Receipt Date: 20111027
  Transmission Date: 20120403
  Serious: Yes (Hospitalization)
  Sender: FDA-Public Use
  Company Number: US-BIOGENIDEC-2011BI024943

PATIENT
  Age: 41 Year
  Sex: Female

DRUGS (1)
  1. TYSABRI [Suspect]
     Indication: MULTIPLE SCLEROSIS
     Route: 042
     Dates: start: 20100721, end: 20110615

REACTIONS (7)
  - CORONARY ARTERY DISEASE [None]
  - CARDIAC PROCEDURE COMPLICATION [None]
  - BACK PAIN [None]
  - VITAMIN B12 DECREASED [None]
  - TREMOR [None]
  - BALANCE DISORDER [None]
  - BLOOD IRON DECREASED [None]
